FAERS Safety Report 8807560 (Version 1)
Quarter: 2012Q4

REPORT INFORMATION
  Report Type: 
  Country: US (occurrence: US)
  Receive Date: 20120925
  Receipt Date: 20120925
  Transmission Date: 20130627
  Serious: No
  Sender: FDA-Public Use
  Company Number: US-FOUGERA-2012FO000329

PATIENT
  Age: 9 Year
  Sex: Female
  Weight: 35.38 kg

DRUGS (1)
  1. LIDOCAINE + PRILOCAINE [Suspect]
     Indication: LOCAL ANAESTHESIA
     Route: 061
     Dates: start: 20120123, end: 20120123

REACTIONS (1)
  - Application site rash [Recovered/Resolved]
